FAERS Safety Report 6268366-8 (Version None)
Quarter: 2009Q3

REPORT INFORMATION
  Report Type: 
  Country: None (occurrence: None)
  Receive Date: 20090713
  Receipt Date: 20090713
  Transmission Date: 20100115
  Serious: Yes (Other)
  Sender: FDA-Public Use
  Company Number: None

PATIENT
  Age: 33 Year
  Sex: Female
  Weight: 50.3493 kg

DRUGS (3)
  1. GEODON [Suspect]
     Indication: BIPOLAR I DISORDER
     Dosage: 120MG DAILY PO
     Route: 048
     Dates: start: 20090122, end: 20090227
  2. WELLBUTRIN SR [Concomitant]
  3. DEPAKOTE ER [Concomitant]

REACTIONS (2)
  - GALACTORRHOEA [None]
  - UPPER RESPIRATORY TRACT INFECTION [None]
